FAERS Safety Report 12264375 (Version 1)
Quarter: 2016Q2

REPORT INFORMATION
  Report Type: Spontaneous
  Country: GB (occurrence: GB)
  Receive Date: 20160413
  Receipt Date: 20160413
  Transmission Date: 20160815
  Serious: Yes (Life-Threatening, Hospitalization)
  Sender: FDA-Public Use
  Company Number: GB-ELI_LILLY_AND_COMPANY-GB201604002346

PATIENT
  Age: 44 Year
  Sex: Male
  Weight: 82 kg

DRUGS (10)
  1. INNOHEP [Concomitant]
     Active Substance: TINZAPARIN SODIUM
     Indication: PRODUCT USED FOR UNKNOWN INDICATION
     Dosage: UNK UNK, UNKNOWN
     Route: 065
  2. HALOPERIDOL. [Concomitant]
     Active Substance: HALOPERIDOL
     Indication: PRODUCT USED FOR UNKNOWN INDICATION
     Dosage: UNK, UNKNOWN
     Route: 065
  3. EPILIM [Suspect]
     Active Substance: VALPROATE SODIUM
     Indication: HYPOMANIA
     Dosage: UNK UNK, UNKNOWN (UNSURE BUT MAYBE IN THE RANGE OF 0.5-1G DAILY)
     Route: 048
     Dates: start: 20160217
  4. ANTIBIOTICS [Concomitant]
     Active Substance: UNSPECIFIED INGREDIENT
     Indication: PRODUCT USED FOR UNKNOWN INDICATION
     Dosage: UNK UNK, UNKNOWN
     Route: 065
  5. FLUCLOXACILLIN [Concomitant]
     Active Substance: FLUCLOXACILLIN
     Indication: PRODUCT USED FOR UNKNOWN INDICATION
     Dosage: UNK, UNKNOWN
     Route: 065
  6. OLANZAPINE. [Suspect]
     Active Substance: OLANZAPINE
     Indication: HYPOMANIA
     Dosage: 10 MG, QD
     Route: 048
     Dates: start: 20160217
  7. ASPIRIN                            /00002701/ [Concomitant]
     Active Substance: ASPIRIN
     Indication: PRODUCT USED FOR UNKNOWN INDICATION
     Dosage: UNK, UNKNOWN
     Route: 065
  8. CLONAZEPAM. [Suspect]
     Active Substance: CLONAZEPAM
     Indication: AGITATION
     Dosage: 4 MG, QD (IN FOUR DOSES)
     Route: 048
     Dates: start: 20160217
  9. PHENERGAN [Interacting]
     Active Substance: PROMETHAZINE HYDROCHLORIDE
     Indication: AGITATION
     Dosage: UNK UNK, UNKNOWN (UNSURE, PERHAPS 25MG DAILY)
     Route: 048
     Dates: start: 20160217
  10. OMEGA 3 FISH OIL                   /01334101/ [Concomitant]
     Active Substance: FISH OIL
     Indication: PRODUCT USED FOR UNKNOWN INDICATION
     Dosage: UNK, UNKNOWN
     Route: 065

REACTIONS (15)
  - Cerebrovascular accident [Unknown]
  - Pruritus [Unknown]
  - Rash maculo-papular [Unknown]
  - Aggression [Not Recovered/Not Resolved]
  - Oedema peripheral [Not Recovered/Not Resolved]
  - Localised infection [Not Recovered/Not Resolved]
  - Liver injury [Not Recovered/Not Resolved]
  - Drug interaction [Unknown]
  - Reaction to drug excipients [Unknown]
  - Deep vein thrombosis [Recovered/Resolved]
  - Drug hypersensitivity [Not Recovered/Not Resolved]
  - Breathing-related sleep disorder [Unknown]
  - Lung disorder [Unknown]
  - Respiratory arrest [Unknown]
  - Choking [Unknown]

NARRATIVE: CASE EVENT DATE: 20160217
